FAERS Safety Report 8215553-5 (Version None)
Quarter: 2012Q1

REPORT INFORMATION
  Report Type: 
  Country: None (occurrence: None)
  Receive Date: 20120316
  Receipt Date: 20120307
  Transmission Date: 20120608
  Serious: Yes (Hospitalization, Other)
  Sender: FDA-Public Use
  Company Number: CA-ABBOTT-12P-028-0898286-00

PATIENT
  Age: 35 Year
  Sex: Female

DRUGS (5)
  1. COMBIVIR [Concomitant]
     Indication: PRODUCT USED FOR UNKNOWN INDICATION
  2. LAMIVUDINE (EPIVIR HBV) [Concomitant]
     Indication: PRODUCT USED FOR UNKNOWN INDICATION
     Dosage: NOT SPECIFIED
     Route: 065
  3. LOPINAVIR/RTV [Concomitant]
     Indication: PRODUCT USED FOR UNKNOWN INDICATION
     Dates: end: 20100926
  4. AZT [Concomitant]
     Indication: PRODUCT USED FOR UNKNOWN INDICATION
     Dosage: NOT SPECIFIED
     Route: 065
  5. KALETRA [Suspect]
     Indication: HIV INFECTION
     Dosage: 200/50MG, 2 TABS, TWICE DAILY
     Route: 065
     Dates: start: 20100816, end: 20100926

REACTIONS (2)
  - LIVER INJURY [None]
  - HEPATITIS [None]
